FAERS Safety Report 14306007 (Version 5)
Quarter: 2021Q1

REPORT INFORMATION
  Report Type: Spontaneous
  Country: JP (occurrence: JP)
  Receive Date: 20171219
  Receipt Date: 20210326
  Transmission Date: 20210419
  Serious: Yes (Other)
  Sender: FDA-Public Use
  Company Number: JP-BAUSCH-BL-2017-034024

PATIENT
  Age: 1 Year
  Sex: Female

DRUGS (10)
  1. L?ASPARAGINASE [Suspect]
     Active Substance: ASPARAGINASE
     Indication: ACUTE LYMPHOCYTIC LEUKAEMIA
     Dosage: 4 COURSES OF THIS COMBINATION CHEMOTHERAPY
     Route: 065
  2. MITOXANTRONE [Suspect]
     Active Substance: MITOXANTRONE HYDROCHLORIDE
     Indication: ACUTE LYMPHOCYTIC LEUKAEMIA
     Dosage: 4 COURSES OF THIS COMBINATION CHEMOTHERAPY
     Route: 065
  3. L?ASPARAGINASE [Suspect]
     Active Substance: ASPARAGINASE
     Indication: KMT2A GENE MUTATION
  4. DEXAMETHASONE. [Suspect]
     Active Substance: DEXAMETHASONE
     Indication: KMT2A GENE MUTATION
  5. BORTEZOMIB. [Suspect]
     Active Substance: BORTEZOMIB
     Indication: ACUTE LYMPHOCYTIC LEUKAEMIA
     Dosage: 4 COURSES OF THIS COMBINATION CHEMOTHERAPY
     Route: 065
  6. BORTEZOMIB. [Suspect]
     Active Substance: BORTEZOMIB
     Indication: KMT2A GENE MUTATION
  7. VORINOSTAT [Suspect]
     Active Substance: VORINOSTAT
     Indication: KMT2A GENE MUTATION
  8. VORINOSTAT [Suspect]
     Active Substance: VORINOSTAT
     Indication: ACUTE LYMPHOCYTIC LEUKAEMIA
     Dosage: 4 COURSES OF THIS COMBINATION CHEMOTHERAPY
     Route: 065
  9. DEXAMETHASONE. [Suspect]
     Active Substance: DEXAMETHASONE
     Indication: ACUTE LYMPHOCYTIC LEUKAEMIA
     Dosage: 4 COURSES OF THIS COMBINATION CHEMOTHERAPY
     Route: 065
  10. MITOXANTRONE [Suspect]
     Active Substance: MITOXANTRONE HYDROCHLORIDE
     Indication: KMT2A GENE MUTATION

REACTIONS (3)
  - Febrile neutropenia [Unknown]
  - Haematotoxicity [Unknown]
  - Sepsis [Unknown]
